FAERS Safety Report 5097395-5 (Version None)
Quarter: 2006Q3

REPORT INFORMATION
  Report Type: 
  Country: None (occurrence: None)
  Receive Date: 20060828
  Receipt Date: 20060810
  Transmission Date: 20061208
  Serious: Yes (Other)
  Sender: FDA-Public Use
  Company Number: CHPA2006US07624

PATIENT
  Age: 68 Year
  Sex: Male
  Weight: 81.6 kg

DRUGS (10)
  1. NICOTINE [Suspect]
     Indication: SMOKING CESSATION THERAPY
     Dosage: 21 MG, QD, TRANSDERMAL
     Route: 062
     Dates: start: 20060716, end: 20060802
  2. INHALATION THERAPY (NO IGREDIENT/SUBSTANCES) [Concomitant]
  3. ICLAVETALOL HCI [Concomitant]
  4. CLONIDINE [Concomitant]
  5. NEXIUM [Concomitant]
  6. ^RISOSORDIDE^ [Concomitant]
  7. FUROSEMIDE [Concomitant]
  8. NORVASC [Concomitant]
  9. TRICOR [Concomitant]
  10. LIPITOR [Concomitant]

REACTIONS (4)
  - BLINDNESS UNILATERAL [None]
  - DIZZINESS [None]
  - NICOTINE DEPENDENCE [None]
  - VISION BLURRED [None]
